FAERS Safety Report 11442516 (Version 4)
Quarter: 2016Q2

REPORT INFORMATION
  Report Type: Spontaneous
  Country: JP (occurrence: JP)
  Receive Date: 20150901
  Receipt Date: 20160620
  Transmission Date: 20160815
  Serious: Yes (Death, Life-Threatening)
  Sender: FDA-Public Use
  Company Number: JP-JNJFOC-20140609474

PATIENT
  Age: 36 Year
  Sex: Female

DRUGS (18)
  1. DORAL [Concomitant]
     Active Substance: QUAZEPAM
     Indication: PSYCHOTIC DISORDER
     Dosage: BEFORE SLEEPING
     Route: 048
     Dates: start: 20130516, end: 20130521
  2. RISPERDAL [Suspect]
     Active Substance: RISPERIDONE
     Indication: PSYCHOTIC DISORDER
     Dosage: BEFORE PREGNANCY, BEFORE SLEEPING
     Route: 048
     Dates: start: 20130507, end: 20130508
  3. RISPERDAL [Suspect]
     Active Substance: RISPERIDONE
     Indication: SCHIZOPHRENIA
     Dosage: BEFORE PREGNANCY, BEFORE SLEEPING
     Route: 048
     Dates: start: 20130507, end: 20130508
  4. NITRAZEPAM [Concomitant]
     Active Substance: NITRAZEPAM
     Indication: PSYCHOTIC DISORDER
     Dosage: BEFORE SLEEPING
     Route: 048
     Dates: start: 20130507, end: 20130508
  5. RISPERDAL [Suspect]
     Active Substance: RISPERIDONE
     Indication: SCHIZOPHRENIA
     Dosage: BEFORE PREGNANCY, BEFORE SLEEPING
     Route: 048
     Dates: start: 20130509, end: 20130515
  6. NITRAZEPAM [Concomitant]
     Active Substance: NITRAZEPAM
     Indication: PSYCHOTIC DISORDER
     Route: 048
  7. NITRAZEPAM [Concomitant]
     Active Substance: NITRAZEPAM
     Indication: PSYCHOTIC DISORDER
     Dosage: BEFORE SLEEPING
     Route: 048
     Dates: start: 20130509, end: 20130515
  8. RISPERDAL [Suspect]
     Active Substance: RISPERIDONE
     Indication: SCHIZOPHRENIA
     Dosage: BEFORE SLEEPING
     Route: 048
     Dates: start: 20130522, end: 201305
  9. RISPERDAL [Suspect]
     Active Substance: RISPERIDONE
     Indication: SCHIZOPHRENIA
     Dosage: BEFORE PREGNANCY, BEFORE SLEEPING
     Route: 048
  10. RISPERDAL [Suspect]
     Active Substance: RISPERIDONE
     Indication: PSYCHOTIC DISORDER
     Dosage: BEFORE PREGNANCY, BEFORE SLEEPING
     Route: 048
  11. RISPERDAL [Suspect]
     Active Substance: RISPERIDONE
     Indication: PSYCHOTIC DISORDER
     Dosage: 4 TIMES PER DAY (1MG*3 TIMES, 2MG*1 TIME)
     Route: 048
     Dates: start: 20130516, end: 20130521
  12. RISPERDAL [Suspect]
     Active Substance: RISPERIDONE
     Indication: SCHIZOPHRENIA
     Dosage: 4 TIMES PER DAY (1MG*3 TIMES, 2MG*1 TIME)
     Route: 048
     Dates: start: 20130516, end: 20130521
  13. NITRAZEPAM [Concomitant]
     Active Substance: NITRAZEPAM
     Indication: SCHIZOPHRENIA
     Dosage: BEFORE SLEEPING
     Route: 048
     Dates: start: 20130507, end: 20130508
  14. DORAL [Concomitant]
     Active Substance: QUAZEPAM
     Indication: SCHIZOPHRENIA
     Dosage: BEFORE SLEEPING
     Route: 048
     Dates: start: 20130516, end: 20130521
  15. RISPERDAL [Suspect]
     Active Substance: RISPERIDONE
     Indication: PSYCHOTIC DISORDER
     Dosage: BEFORE SLEEPING
     Route: 048
     Dates: start: 20130522, end: 201305
  16. RISPERDAL [Suspect]
     Active Substance: RISPERIDONE
     Indication: PSYCHOTIC DISORDER
     Dosage: BEFORE PREGNANCY, BEFORE SLEEPING
     Route: 048
     Dates: start: 20130509, end: 20130515
  17. NITRAZEPAM [Concomitant]
     Active Substance: NITRAZEPAM
     Indication: SCHIZOPHRENIA
     Dosage: BEFORE SLEEPING
     Route: 048
     Dates: start: 20130509, end: 20130515
  18. NITRAZEPAM [Concomitant]
     Active Substance: NITRAZEPAM
     Indication: SCHIZOPHRENIA
     Route: 048

REACTIONS (5)
  - Pyrexia [Fatal]
  - Cardiac death [Fatal]
  - Neuroleptic malignant syndrome [Fatal]
  - Product use issue [Unknown]
  - Off label use [Unknown]

NARRATIVE: CASE EVENT DATE: 20130521
